FAERS Safety Report 15811936 (Version 1)
Quarter: 2019Q1

REPORT INFORMATION
  Report Type: Spontaneous
  Country: US (occurrence: US)
  Receive Date: 20190103
  Receipt Date: 20190103
  Transmission Date: 20190417
  Serious: No
  Sender: FDA-Public Use
  Company Number: None

PATIENT

DRUGS (2)
  1. HEPARIN 1000 UNITS / 500ML IV BAG [Suspect]
     Active Substance: HEPARIN SODIUM
     Dosage: ?          OTHER STRENGTH:1000 UNITS / 500ML;OTHER ROUTE:INJECTION?
     Route: 042
  2. HEPARIN 25000 UNITS / 500ML IV BAG [Suspect]
     Active Substance: HEPARIN SODIUM
     Dosage: ?          OTHER STRENGTH:25000 UNITS/ 500ML;OTHER ROUTE:INJECTION?

REACTIONS (1)
  - Product appearance confusion [None]
